FAERS Safety Report 19321714 (Version 1)
Quarter: 2021Q2

REPORT INFORMATION
  Report Type: Spontaneous
  Country: US (occurrence: US)
  Receive Date: 20210528
  Receipt Date: 20210528
  Transmission Date: 20210717
  Serious: Yes (Death)
  Sender: FDA-Public Use
  Company Number: None

PATIENT
  Sex: Male

DRUGS (15)
  1. GLIMEPRIDE [Concomitant]
     Active Substance: GLIMEPIRIDE
  2. JANUVIA [Concomitant]
     Active Substance: SITAGLIPTIN PHOSPHATE
  3. CLONAZEPAM. [Concomitant]
     Active Substance: CLONAZEPAM
  4. SIMVASTATIN. [Concomitant]
     Active Substance: SIMVASTATIN
  5. GABAPENTIN. [Concomitant]
     Active Substance: GABAPENTIN
  6. OLANZAPINE. [Concomitant]
     Active Substance: OLANZAPINE
  7. OXYCO [Concomitant]
  8. MORPHINE [Concomitant]
     Active Substance: MORPHINE
  9. OLANZAPINE. [Concomitant]
     Active Substance: OLANZAPINE
  10. KEYTRUDA [Suspect]
     Active Substance: PEMBROLIZUMAB
     Indication: RENAL CANCER
     Dosage: ?          OTHER FREQUENCY:EVERY 3 WEEKS;?
     Route: 042
     Dates: start: 20200505
  11. SERTRALINE [Concomitant]
     Active Substance: SERTRALINE HYDROCHLORIDE
  12. FUROSEMIDE. [Concomitant]
     Active Substance: FUROSEMIDE
  13. PREDNISONE. [Concomitant]
     Active Substance: PREDNISONE
  14. PACERONE [Concomitant]
     Active Substance: AMIODARONE HYDROCHLORIDE
  15. TAMSULOSIN [Concomitant]
     Active Substance: TAMSULOSIN

REACTIONS (1)
  - Death [None]
